FAERS Safety Report 24882405 (Version 1)
Quarter: 2025Q1

REPORT INFORMATION
  Report Type: Report from Study
  Country: CA (occurrence: CA)
  Receive Date: 20250124
  Receipt Date: 20250124
  Transmission Date: 20250408
  Serious: Yes (Other)
  Sender: TEVA
  Company Number: CA-TEVA-VS-3290251

PATIENT
  Sex: Male

DRUGS (1)
  1. FINGOLIMOD [Suspect]
     Active Substance: FINGOLIMOD
     Indication: Relapsing-remitting multiple sclerosis
     Route: 065

REACTIONS (2)
  - Multiple sclerosis [Unknown]
  - Multiple sclerosis relapse [Unknown]
